FAERS Safety Report 4350628-2 (Version None)
Quarter: 2004Q2

REPORT INFORMATION
  Report Type: 
  Country: None (occurrence: None)
  Receive Date: 20040427
  Receipt Date: 20040415
  Transmission Date: 20050107
  Serious: Yes (Other)
  Sender: FDA-Public Use
  Company Number: 200411066GDS

PATIENT
  Age: 75 Year
  Sex: Female

DRUGS (5)
  1. MICARDIS [Suspect]
     Indication: HYPERTENSION
     Dosage: 40 MG, TOTAL DAILY, ORAL
     Route: 048
     Dates: start: 20040126, end: 20040304
  2. ASPIRIN [Suspect]
     Dates: start: 20040217, end: 20040304
  3. CARVEDILOL [Suspect]
     Indication: SUPRAVENTRICULAR TACHYCARDIA
     Dosage: 100 MG, TOTAL DAILY, ORAL
     Route: 048
     Dates: start: 20040217, end: 20040304
  4. DEPAS (ETIZOLAM) [Suspect]
     Indication: ANXIETY
     Dosage: 0.5 MG, TOTAL DAILY, ORAL
     Route: 048
     Dates: start: 20031211, end: 20040222
  5. MAG-LAX [Concomitant]

REACTIONS (5)
  - FEELING COLD [None]
  - MYALGIA [None]
  - PYREXIA [None]
  - RHABDOMYOLYSIS [None]
  - VIRAL INFECTION [None]
